FAERS Safety Report 7933589-6 (Version None)
Quarter: 2011Q4

REPORT INFORMATION
  Report Type: 
  Country: None (occurrence: None)
  Receive Date: 20111122
  Receipt Date: 20111116
  Transmission Date: 20120403
  Serious: Yes (Death, Life-Threatening, Hospitalization, Other)
  Sender: FDA-Public Use
  Company Number: US-ELI_LILLY_AND_COMPANY-US201110000801

PATIENT
  Sex: Female
  Weight: 50.794 kg

DRUGS (10)
  1. ATENOLOL [Concomitant]
     Indication: BLOOD PRESSURE
     Dosage: 25 MG, UNK
  2. OXYCODONE AND ACETAMINOPHEN [Concomitant]
     Dosage: UNK
     Dates: start: 20110906
  3. CARBOPLATIN [Concomitant]
     Indication: NON-SMALL CELL LUNG CANCER
     Dosage: 335 DF, UNK
     Dates: start: 20110920, end: 20110920
  4. FOLIC ACID [Concomitant]
     Dosage: 1 MG, UNK
     Route: 048
     Dates: start: 20110906
  5. GRANISETRON HCL [Concomitant]
     Dosage: 1 DF, UNK
     Dates: start: 20110729, end: 20110920
  6. ALIMTA [Suspect]
     Indication: NON-SMALL CELL LUNG CANCER
     Dosage: 770 MG, UNK
     Route: 042
     Dates: start: 20110920, end: 20110920
  7. DEXAMETHASONE [Concomitant]
     Dosage: 4 MG, BID
     Route: 048
     Dates: start: 20110906
  8. ASPIRIN [Concomitant]
  9. VITAMIN B-12 [Concomitant]
     Dosage: 1000 UG, SINGLE
     Route: 030
     Dates: start: 20110906, end: 20110906
  10. DEXAMETHASONE SODIUM PHOSPHATE [Concomitant]
     Dosage: 10 DF, UNK
     Dates: start: 20100729, end: 20110920

REACTIONS (9)
  - DIARRHOEA [None]
  - PANCYTOPENIA [None]
  - CARDIAC ARREST [None]
  - RESPIRATORY FAILURE [None]
  - ABDOMINAL PAIN [None]
  - VENTRICULAR ARRHYTHMIA [None]
  - HYPOTENSION [None]
  - ATRIAL FIBRILLATION [None]
  - ACIDOSIS [None]
